FAERS Safety Report 4998065-1 (Version None)
Quarter: 2006Q2

REPORT INFORMATION
  Report Type: 
  Country: None (occurrence: None)
  Receive Date: 20060510
  Receipt Date: 20060117
  Transmission Date: 20061013
  Serious: Yes (Hospitalization, Disabling, Other)
  Sender: FDA-Public Use
  Company Number: US-MERCK-0601USA01966

PATIENT
  Age: 41 Year
  Sex: Female
  Weight: 77 kg

DRUGS (2)
  1. VIOXX [Suspect]
     Route: 048
     Dates: start: 19990101, end: 20041001
  2. SYNTHROID [Concomitant]
     Route: 065

REACTIONS (17)
  - AMNESIA [None]
  - ANXIETY [None]
  - BLINDNESS [None]
  - BRONCHITIS [None]
  - BRONCHITIS CHRONIC [None]
  - CAROTID ARTERY DISEASE [None]
  - CATARACT [None]
  - CEREBROVASCULAR ACCIDENT [None]
  - DYSPNOEA [None]
  - FALL [None]
  - HAEMATURIA [None]
  - MUSCULOSKELETAL PAIN [None]
  - PERICARDITIS [None]
  - PULMONARY EMBOLISM [None]
  - STRESS [None]
  - SYSTEMIC LUPUS ERYTHEMATOSUS [None]
  - TRANSIENT ISCHAEMIC ATTACK [None]
